FAERS Safety Report 19719744 (Version 1)
Quarter: 2021Q3

REPORT INFORMATION
  Report Type: Spontaneous
  Country: US (occurrence: US)
  Receive Date: 20210818
  Receipt Date: 20210818
  Transmission Date: 20211014
  Serious: No
  Sender: FDA-Public Use
  Company Number: None

PATIENT
  Age: 55 Year
  Sex: Female

DRUGS (1)
  1. STELARA [Suspect]
     Active Substance: USTEKINUMAB
     Indication: PSORIATIC ARTHROPATHY
     Dosage: OTHER FREQUENCY:EVERY 12 WEEKS ;?
     Route: 058
     Dates: start: 20200504

REACTIONS (3)
  - Needle issue [None]
  - Injection site extravasation [None]
  - Incorrect dose administered [None]

NARRATIVE: CASE EVENT DATE: 20210504
